FAERS Safety Report 13504114 (Version 1)
Quarter: 2017Q2

REPORT INFORMATION
  Report Type: Not Available
  Country: CA (occurrence: CA)
  Receive Date: 20170502
  Receipt Date: 20170502
  Transmission Date: 20170830
  Serious: Yes (Other)
  Sender: FDA-Public Use
  Company Number: CA-ANIPHARMA-2017-CA-000156

PATIENT
  Age: 70 Year
  Sex: Male
  Weight: 109 kg

DRUGS (6)
  1. BETAHISTINE [Concomitant]
     Active Substance: BETAHISTINE
  2. DIABIGATRAN ETEXILATE [Suspect]
     Active Substance: DABIGATRAN ETEXILATE
     Dosage: 150 MG TWICE DAILY
     Route: 048
  3. DILTIAZEM. [Concomitant]
     Active Substance: DILTIAZEM
  4. VALSARTAN. [Concomitant]
     Active Substance: VALSARTAN
  5. PHENYTOIN SODIUM (NON-SPECIFIC) [Suspect]
     Active Substance: PHENYTOIN SODIUM
     Dosage: 300 MG DAILY
     Route: 048
  6. ATENOLOL. [Concomitant]
     Active Substance: ATENOLOL

REACTIONS (8)
  - Drug interaction [Unknown]
  - International normalised ratio decreased [None]
  - Dyspnoea [None]
  - Atrial thrombosis [Recovered/Resolved]
  - Asthenia [None]
  - Anticonvulsant drug level increased [None]
  - Cardiac murmur [None]
  - Atrial flutter [None]
